FAERS Safety Report 7547875-5 (Version None)
Quarter: 2011Q2

REPORT INFORMATION
  Report Type: 
  Country: None (occurrence: None)
  Receive Date: 20110615
  Receipt Date: 20110609
  Transmission Date: 20111010
  Serious: No
  Sender: FDA-Public Use
  Company Number: US-BIOGENIDEC-2011BI015902

PATIENT
  Age: 69 Year
  Sex: Female

DRUGS (3)
  1. TYSABRI [Suspect]
     Route: 042
     Dates: start: 20110518
  2. TYSABRI [Suspect]
     Indication: MULTIPLE SCLEROSIS
     Route: 042
     Dates: start: 20100617, end: 20101112
  3. AVONEX [Concomitant]
     Indication: MULTIPLE SCLEROSIS
     Route: 030
     Dates: start: 20090110

REACTIONS (5)
  - KIDNEY INFECTION [None]
  - LIVER DISORDER [None]
  - RENAL FUNCTION TEST ABNORMAL [None]
  - HEPATIC INFECTION [None]
  - LIVER FUNCTION TEST ABNORMAL [None]
